FAERS Safety Report 7395336-9 (Version None)
Quarter: 2011Q2

REPORT INFORMATION
  Report Type: 
  Country: None (occurrence: None)
  Receive Date: 20110405
  Receipt Date: 20110330
  Transmission Date: 20111010
  Serious: Yes (Death, Other)
  Sender: FDA-Public Use
  Company Number: GB-PFIZER INC-2011070565

PATIENT
  Age: 34 Year
  Sex: Male

DRUGS (2)
  1. ALCOHOL [Suspect]
     Dosage: UNK
  2. CHAMPIX [Suspect]
     Dosage: UNK
     Dates: start: 20100101

REACTIONS (4)
  - MOOD ALTERED [None]
  - ROAD TRAFFIC ACCIDENT [None]
  - ABDOMINAL PAIN [None]
  - BLOOD ALCOHOL INCREASED [None]
